FAERS Safety Report 5948550-0 (Version None)
Quarter: 2008Q4

REPORT INFORMATION
  Report Type: 
  Country: None (occurrence: None)
  Receive Date: 20081111
  Receipt Date: 20081105
  Transmission Date: 20090506
  Serious: Yes (Other)
  Sender: FDA-Public Use
  Company Number: DK-ASTRAZENECA-2008SE05141

PATIENT
  Sex: Male

DRUGS (2)
  1. SEROQUEL [Suspect]
     Indication: DELUSION
     Route: 048
  2. ZYPREXA [Concomitant]

REACTIONS (5)
  - MUSCLE RIGIDITY [None]
  - MYALGIA [None]
  - OEDEMA PERIPHERAL [None]
  - PERIOSTITIS [None]
  - TACHYCARDIA [None]
